FAERS Safety Report 20124017 (Version 2)
Quarter: 2022Q1

REPORT INFORMATION
  Report Type: Spontaneous
  Country: PT (occurrence: PT)
  Receive Date: 20211129
  Receipt Date: 20220110
  Transmission Date: 20220424
  Serious: Yes (Other)
  Sender: FDA-Public Use
  Company Number: PT-TEVA-2021-PT-1982482

PATIENT
  Age: 4 Year
  Sex: Female

DRUGS (7)
  1. KETOCONAZOLE [Suspect]
     Active Substance: KETOCONAZOLE
     Indication: Mucocutaneous candidiasis
     Dosage: RECEIVED 20MG/G
     Route: 061
  2. ITRACONAZOLE [Suspect]
     Active Substance: ITRACONAZOLE
     Indication: Mucocutaneous candidiasis
     Dosage: 5 MG/KG DAILY;
     Route: 048
  3. ITRACONAZOLE [Suspect]
     Active Substance: ITRACONAZOLE
     Dosage: 5 MG/KG DAILY;
     Route: 048
  4. TERBINAFINE [Suspect]
     Active Substance: TERBINAFINE
     Indication: Mucocutaneous candidiasis
     Dosage: RECEIVED 20MG/G
     Route: 061
  5. IMIQUIMOD [Suspect]
     Active Substance: IMIQUIMOD
     Indication: Mucocutaneous candidiasis
     Dosage: RECEIVED ONE SACHET PER WEEK
     Route: 061
  6. FLUCONAZOLE [Concomitant]
     Active Substance: FLUCONAZOLE
     Indication: Mucocutaneous candidiasis
     Dosage: 4 MG/KG DAILY;
  7. CICLOPIROX [Concomitant]
     Active Substance: CICLOPIROX
     Indication: Mucocutaneous candidiasis
     Route: 065

REACTIONS (3)
  - Hepatotoxicity [Unknown]
  - Skin lesion [Recovering/Resolving]
  - Drug ineffective [Unknown]
